FAERS Safety Report 6249840-7 (Version None)
Quarter: 2009Q2

REPORT INFORMATION
  Report Type: 
  Country: None (occurrence: None)
  Receive Date: 20090624
  Receipt Date: 20090617
  Transmission Date: 20091009
  Serious: Yes (Congenital Anomaly)
  Sender: FDA-Public Use
  Company Number: 2009SP013441

PATIENT

DRUGS (1)
  1. ECURAL (MOMETASONE FUROATE (TOPICAL) ) (MOMETASONE FUROATE) [Suspect]
     Indication: DRUG USE FOR UNKNOWN INDICATION
     Dosage: TRPL
     Route: 064

REACTIONS (7)
  - BLADDER DILATATION [None]
  - CLEFT LIP AND PALATE [None]
  - GROWTH RETARDATION [None]
  - HOLOPROSENCEPHALY [None]
  - HYPOTELORISM OF ORBIT [None]
  - MATERNAL DRUGS AFFECTING FOETUS [None]
  - TRISOMY 18 [None]
